FAERS Safety Report 6783807-5 (Version None)
Quarter: 2010Q2

REPORT INFORMATION
  Report Type: 
  Country: None (occurrence: None)
  Receive Date: 20100622
  Receipt Date: 20100609
  Transmission Date: 20101027
  Serious: Yes (Hospitalization)
  Sender: FDA-Public Use
  Company Number: PHHY2010US33353

PATIENT
  Sex: Male
  Weight: 75.3 kg

DRUGS (2)
  1. EXJADE [Suspect]
     Indication: CHRONIC MYELOID LEUKAEMIA
     Dosage: 500 MG, BID
     Route: 048
     Dates: start: 20090925
  2. EXJADE [Suspect]
     Indication: IRON OVERLOAD

REACTIONS (3)
  - CARDIAC FAILURE CONGESTIVE [None]
  - DYSPNOEA [None]
  - HAEMOGLOBIN DECREASED [None]
